FAERS Safety Report 6495556-1 (Version None)
Quarter: 2009Q4

REPORT INFORMATION
  Report Type: 
  Country: None (occurrence: None)
  Receive Date: 20091214
  Receipt Date: 20090713
  Transmission Date: 20100525
  Serious: No
  Sender: FDA-Public Use
  Company Number: US-BRISTOL-MYERS SQUIBB COMPANY-14699987

PATIENT
  Sex: Female

DRUGS (3)
  1. ABILIFY [Suspect]
  2. LEXAPRO [Concomitant]
  3. WELLBUTRIN [Concomitant]

REACTIONS (3)
  - DRY MOUTH [None]
  - FEELING ABNORMAL [None]
  - WEIGHT INCREASED [None]
